FAERS Safety Report 9801105 (Version 3)
Quarter: 2014Q1

REPORT INFORMATION
  Report Type: Spontaneous
  Country: IT (occurrence: IT)
  Receive Date: 20140107
  Receipt Date: 20140217
  Transmission Date: 20141002
  Serious: Yes (Hospitalization, Other)
  Sender: FDA-Public Use
  Company Number: IT-009507513-1401ITA000490

PATIENT
  Age: 44 Year
  Sex: Male

DRUGS (3)
  1. REBETOL [Suspect]
     Indication: CHRONIC HEPATITIS C
     Dosage: TOTAL DAILY DOSE: 1000 MG, QD
     Route: 048
     Dates: start: 20131008, end: 20131023
  2. PEGASYS [Suspect]
     Indication: CHRONIC HEPATITIS C
     Dosage: 180 MICROGRAM, QW
     Route: 058
     Dates: start: 20131008, end: 20131015
  3. INCIVEK [Suspect]
     Indication: CHRONIC HEPATITIS C
     Dosage: 2 TABLET, THREE TIMES A DAY / 6 POSOLOGICAL UNITS, DAILY
     Route: 048
     Dates: start: 20131008, end: 20131023

REACTIONS (1)
  - Bone marrow failure [Recovered/Resolved]
